FAERS Safety Report 9807433 (Version 1)
Quarter: 2014Q1

REPORT INFORMATION
  Report Type: Spontaneous
  Country: US (occurrence: US)
  Receive Date: 20140110
  Receipt Date: 20140110
  Transmission Date: 20141002
  Serious: No
  Sender: FDA-Public Use
  Company Number: US-PFIZER INC-2014004807

PATIENT
  Age: 30 Year
  Sex: Female
  Weight: 55.78 kg

DRUGS (1)
  1. ADVIL [Suspect]
     Indication: PAIN
     Dosage: 200 MG, AS NEEDED
     Route: 048
     Dates: end: 201401

REACTIONS (3)
  - Hypersensitivity [Recovered/Resolved]
  - Paraesthesia [Recovered/Resolved]
  - Eye swelling [Recovered/Resolved]
